FAERS Safety Report 5677938-0 (Version None)
Quarter: 2008Q1

REPORT INFORMATION
  Report Type: 
  Country: None (occurrence: None)
  Receive Date: 20080319
  Receipt Date: 20011112
  Transmission Date: 20080703
  Serious: Yes (Life-Threatening, Other)
  Sender: FDA-Public Use
  Company Number: US022678

PATIENT
  Age: 44 Year
  Sex: Male

DRUGS (5)
  1. PROVIGIL [Suspect]
     Indication: DEPRESSION
     Dosage: 200 MG QD ORAL
     Route: 048
     Dates: start: 20010831
  2. PROVIGIL [Suspect]
     Indication: FATIGUE
     Dosage: 200 MG QD ORAL
     Route: 048
     Dates: start: 20010831
  3. CELEXA [Concomitant]
  4. EFFEXOR [Concomitant]
  5. RISPERDAL [Concomitant]

REACTIONS (1)
  - THROMBOSIS [None]
